FAERS Safety Report 11245988 (Version 2)
Quarter: 2015Q3

REPORT INFORMATION
  Report Type: Spontaneous
  Country: US (occurrence: US)
  Receive Date: 20150708
  Receipt Date: 20150915
  Transmission Date: 20151125
  Serious: No
  Sender: FDA-Public Use
  Company Number: US-LEO PHARMA-235364

PATIENT
  Age: 80 Year
  Sex: Male

DRUGS (1)
  1. PICATO [Suspect]
     Active Substance: INGENOL MEBUTATE
     Indication: ACTINIC KERATOSIS
     Dates: start: 20150617, end: 20150618

REACTIONS (8)
  - Application site vesicles [Recovered/Resolved]
  - Application site paraesthesia [Recovered/Resolved]
  - Incorrect dose administered [Unknown]
  - Application site swelling [Recovered/Resolved]
  - Intercepted drug prescribing error [Unknown]
  - Application site scab [Recovered/Resolved]
  - Therapeutic response unexpected [Unknown]
  - Application site pain [Recovered/Resolved]

NARRATIVE: CASE EVENT DATE: 20150617
